FAERS Safety Report 6913306-9 (Version None)
Quarter: 2010Q3

REPORT INFORMATION
  Report Type: 
  Country: None (occurrence: None)
  Receive Date: 20100809
  Receipt Date: 20100804
  Transmission Date: 20110219
  Serious: Yes (Hospitalization)
  Sender: FDA-Public Use
  Company Number: US-ASTRAZENECA-2007UW12111

PATIENT
  Age: 16445 Day
  Sex: Female
  Weight: 72.6 kg

DRUGS (30)
  1. SEROQUEL [Suspect]
     Indication: DEPRESSION
     Dosage: 25 MG - 600 MG
     Route: 048
     Dates: start: 20040209
  2. SEROQUEL [Suspect]
     Indication: BIPOLAR DISORDER
     Dosage: 25 MG - 600 MG
     Route: 048
     Dates: start: 20040209
  3. SEROQUEL [Suspect]
     Indication: INSOMNIA
     Dosage: 25 MG - 600 MG
     Route: 048
     Dates: start: 20040209
  4. SEROQUEL [Suspect]
     Indication: PANIC DISORDER
     Dosage: 25 MG - 600 MG
     Route: 048
     Dates: start: 20040209
  5. SEROQUEL [Suspect]
     Indication: ANXIETY
     Dosage: 25 MG - 600 MG
     Route: 048
     Dates: start: 20040209
  6. SEROQUEL [Suspect]
     Route: 048
     Dates: start: 20040909
  7. SEROQUEL [Suspect]
     Route: 048
     Dates: start: 20040909
  8. SEROQUEL [Suspect]
     Route: 048
     Dates: start: 20040909
  9. SEROQUEL [Suspect]
     Route: 048
     Dates: start: 20040909
  10. SEROQUEL [Suspect]
     Route: 048
     Dates: start: 20040909
  11. SEROQUEL [Suspect]
     Dosage: 200MG-400MG
     Route: 048
     Dates: start: 20071121
  12. SEROQUEL [Suspect]
     Dosage: 200MG-400MG
     Route: 048
     Dates: start: 20071121
  13. SEROQUEL [Suspect]
     Dosage: 200MG-400MG
     Route: 048
     Dates: start: 20071121
  14. SEROQUEL [Suspect]
     Dosage: 200MG-400MG
     Route: 048
     Dates: start: 20071121
  15. SEROQUEL [Suspect]
     Dosage: 200MG-400MG
     Route: 048
     Dates: start: 20071121
  16. ABILIFY [Concomitant]
     Indication: AFFECT LABILITY
     Dates: start: 20030828, end: 20041007
  17. ABILIFY [Concomitant]
     Dates: start: 20090101
  18. TEMAZEPAM [Concomitant]
     Indication: INSOMNIA
     Dosage: 15-30 MG EVERY NIGHT AS REQUIRED
     Route: 048
     Dates: start: 20031117, end: 20040209
  19. GEODON [Concomitant]
     Indication: INSOMNIA
     Dosage: 40MG-80MG AS REQUIRED
     Dates: start: 20040308
  20. GEODON [Concomitant]
     Dates: start: 20060801, end: 20061201
  21. WELLBUTRIN XL [Concomitant]
     Dates: start: 20040101, end: 20050101
  22. LAMICTAL [Concomitant]
     Dosage: 25MG-200MG EVERY NIGHT
     Dates: start: 20040503, end: 20060216
  23. LAMICTAL [Concomitant]
  24. LAMICTAL [Concomitant]
     Dates: start: 20040101, end: 20090101
  25. DIAZEPAM [Concomitant]
     Dosage: 5MG - 10MG EVERY NIGHT
     Dates: start: 20040209
  26. LEXAPRO [Concomitant]
     Dosage: 10 - 40 MG EVERY MORNING
     Route: 048
     Dates: start: 20030828
  27. STELAZINE [Concomitant]
     Dates: start: 19740101
  28. THORAZINE [Concomitant]
     Dates: start: 19740101
  29. CYMBALTA [Concomitant]
     Dosage: 30 MG-90MG
     Dates: start: 20050101
  30. GABAPENTIN [Concomitant]
     Dates: start: 20071221

REACTIONS (6)
  - BLOOD CHOLESTEROL INCREASED [None]
  - EMPHYSEMA [None]
  - HYPERGLYCAEMIA [None]
  - HYPERLIPIDAEMIA [None]
  - OVERDOSE [None]
  - TYPE 2 DIABETES MELLITUS [None]
